FAERS Safety Report 11456967 (Version 1)
Quarter: 2015Q3

REPORT INFORMATION
  Report Type: Spontaneous
  Country: AU (occurrence: AU)
  Receive Date: 20150904
  Receipt Date: 20150904
  Transmission Date: 20151125
  Serious: Yes (Death, Other)
  Sender: FDA-Public Use
  Company Number: AU-CIPLA LTD.-2015AU07110

PATIENT

DRUGS (6)
  1. IRINOTECAN [Suspect]
     Active Substance: IRINOTECAN
     Indication: OPTIC GLIOMA
     Dosage: 125 TO 150 MG/M2 EVERY 2 WEEKS, FOR 12 MONTHS
     Route: 042
  2. TEMOZOLOMIDE. [Suspect]
     Active Substance: TEMOZOLOMIDE
     Indication: OPTIC GLIOMA
     Dosage: FOR 10 MONTHS, FOR 9 MONTHS
     Route: 065
  3. VINCRISTINE [Suspect]
     Active Substance: VINCRISTINE
     Indication: OPTIC GLIOMA
     Dosage: UNK, FOR 7 MONTHS, FOR 10 MONTHS
     Route: 065
  4. BEVACIZUMAB [Suspect]
     Active Substance: BEVACIZUMAB
     Indication: OPTIC GLIOMA
     Dosage: 10 MG/KG, EVERY 2 WEEKS, FOR 12 MONTHS
     Route: 042
  5. PROCARBAZINE [Suspect]
     Active Substance: PROCARBAZINE
     Indication: OPTIC GLIOMA
     Dosage: UNK, FOR 10 MONTHS
     Route: 065
  6. CARBOPLATIN. [Suspect]
     Active Substance: CARBOPLATIN
     Indication: OPTIC GLIOMA
     Dosage: UNK, FOR 7 MONTHS, 10 MONTHS
     Route: 065

REACTIONS (7)
  - Failure to thrive [Unknown]
  - Treatment failure [Unknown]
  - Lethargy [Unknown]
  - Endocrine disorder [Unknown]
  - Disease recurrence [Unknown]
  - Disease progression [Fatal]
  - Headache [Unknown]
